FAERS Safety Report 9227081 (Version 1)
Quarter: 2013Q2

REPORT INFORMATION
  Report Type: Spontaneous
  Country: US (occurrence: None)
  Receive Date: 20130410
  Receipt Date: 20130410
  Transmission Date: 20140414
  Serious: No
  Sender: FDA-Public Use
  Company Number: None

PATIENT
  Sex: Female
  Weight: 68.95 kg

DRUGS (2)
  1. AMLODIPINE [Suspect]
     Indication: HYPERTENSION
     Dosage: AMLODIPINE QD ORAL
     Route: 048
  2. ATORVASTATIN [Suspect]
     Indication: HYPERLIPIDAEMIA
     Dosage: ATORVASTATIN QD ORAL
     Route: 048

REACTIONS (4)
  - Product substitution issue [None]
  - Drug intolerance [None]
  - Myalgia [None]
  - Immobile [None]
